FAERS Safety Report 16964814 (Version 1)
Quarter: 2019Q4

REPORT INFORMATION
  Report Type: Spontaneous
  Country: US (occurrence: US)
  Receive Date: 20191028
  Receipt Date: 20191028
  Transmission Date: 20200122
  Serious: No
  Sender: FDA-Public Use
  Company Number: US-ALLERGAN-1934352US

PATIENT

DRUGS (1)
  1. INFED [Suspect]
     Active Substance: IRON DEXTRAN
     Indication: MATERNAL EXPOSURE TIMING UNSPECIFIED
     Dosage: 50 MG (1 TIME USE)
     Route: 064
     Dates: start: 20190802, end: 20190802

REACTIONS (2)
  - Heart rate decreased [Unknown]
  - Exposure during pregnancy [Unknown]
